FAERS Safety Report 12990854 (Version 4)
Quarter: 2018Q3

REPORT INFORMATION
  Report Type: Report from Study
  Country: None (occurrence: CZ)
  Receive Date: 20161201
  Receipt Date: 20180822
  Transmission Date: 20181010
  Serious: Yes (Life-Threatening, Hospitalization)
  Sender: FDA-Public Use
  Company Number: CZ-ABBVIE-16P-217-1688551-00

PATIENT
  Age: 75 Year
  Sex: Female
  Weight: 66 kg

DRUGS (31)
  1. VENETOCLAX. [Suspect]
     Active Substance: VENETOCLAX
     Indication: B-CELL LYMPHOMA
     Dosage: DATE OF LAST DOSE (800MG) PRIOR TO EVENT : 22 JUL 2016
     Route: 048
     Dates: start: 20160512
  2. DOXORUBICIN [Suspect]
     Active Substance: DOXORUBICIN
     Indication: B-CELL LYMPHOMA
     Dosage: DATE OF LAST DOSE (85 MG) PRIOR TO EVENT : 18 JUL 2016
     Route: 042
     Dates: start: 20160509
  3. BISEPTOL [Concomitant]
     Active Substance: SULFAMETHOXAZOLE\TRIMETHOPRIM
     Indication: BRONCHITIS
     Dates: start: 20160623, end: 20160626
  4. FLUCONAZOL [Concomitant]
     Active Substance: FLUCONAZOLE
     Indication: PROPHYLAXIS
     Dates: start: 20160727, end: 20160804
  5. VINCRISTINE [Suspect]
     Active Substance: VINCRISTINE
     Indication: B-CELL LYMPHOMA
     Dosage: DATE OF LAST DOSE  PRIOR TO EVENT : 18 JUL 2016
     Route: 065
     Dates: start: 20160509
  6. RED BLOOD CELLS [Concomitant]
     Active Substance: HUMAN RED BLOOD CELL
     Dates: start: 20160728, end: 20160728
  7. ACC LONG [Concomitant]
     Active Substance: ACETYLCYSTEINE
     Indication: BRONCHITIS
     Dates: start: 20160608, end: 20160819
  8. AMBROXOL [Concomitant]
     Active Substance: AMBROXOL
     Indication: PRODUCT USED FOR UNKNOWN INDICATION
     Dates: start: 20160801, end: 20160804
  9. METOCLOPRAMIDE. [Concomitant]
     Active Substance: METOCLOPRAMIDE
     Indication: PRODUCT USED FOR UNKNOWN INDICATION
     Dates: start: 20160627, end: 20160701
  10. TANTUM VERDE [Concomitant]
     Active Substance: BENZYDAMINE HYDROCHLORIDE
     Indication: DENTAL DISORDER PROPHYLAXIS
     Dates: start: 20160608
  11. RED BLOOD CELLS [Concomitant]
     Active Substance: HUMAN RED BLOOD CELL
     Indication: ANAEMIA
     Dates: start: 20160727, end: 20160727
  12. CEFEPIME [Concomitant]
     Active Substance: CEFEPIME HYDROCHLORIDE
     Indication: FEBRILE NEUTROPENIA
     Dates: start: 20160727, end: 20160803
  13. METOCLOPRAMIDE. [Concomitant]
     Active Substance: METOCLOPRAMIDE
     Dates: start: 20160718, end: 20160722
  14. ACC LONG [Concomitant]
     Active Substance: ACETYLCYSTEINE
     Indication: PRODUCT USED FOR UNKNOWN INDICATION
     Dates: start: 20160728, end: 20160819
  15. CYCLOPHOSPHAMIDE. [Suspect]
     Active Substance: CYCLOPHOSPHAMIDE
     Indication: B-CELL LYMPHOMA
     Dosage: DATE OF LAST DOSE (1275 MG) PRIOR TO EVENT : 18 JUL 2016
     Route: 042
     Dates: start: 20160509
  16. BISEPTOL [Concomitant]
     Active Substance: SULFAMETHOXAZOLE\TRIMETHOPRIM
     Indication: ANTIFUNGAL PROPHYLAXIS
     Dates: start: 20160627, end: 20160919
  17. EUTHYROX [Concomitant]
     Active Substance: LEVOTHYROXINE SODIUM
     Indication: HYPOTHYROIDISM
     Dosage: 75 UG
     Dates: start: 2010
  18. OXAZEPAM. [Concomitant]
     Active Substance: OXAZEPAM
     Indication: INSOMNIA
  19. PARACETAMOL [Concomitant]
     Active Substance: ACETAMINOPHEN
     Indication: HEADACHE
  20. HERPESIN [Concomitant]
     Active Substance: ACYCLOVIR
     Indication: PROPHYLAXIS
     Dates: start: 20160526, end: 20160804
  21. RITUXIMAB. [Suspect]
     Active Substance: RITUXIMAB
     Indication: B-CELL LYMPHOMA
     Dosage: DATE OF LAST DOSE (637.5 MG) PRIOR TO EVENT : 18 JUL 2016
     Route: 042
     Dates: start: 20160509
  22. TONARSSA [Concomitant]
     Indication: HYPERTENSION
     Dosage: 2/5MG
     Dates: start: 20160516, end: 20160919
  23. PREDNISONE. [Suspect]
     Active Substance: PREDNISONE
     Indication: B-CELL LYMPHOMA
     Dosage: MOST DATE OF LAST DOSE (100 MG) PRIOR TO EVENT : 22 JUL 2016
     Route: 048
     Dates: start: 20160509
  24. ENDIARON [Concomitant]
     Indication: DIARRHOEA
     Dates: start: 20160707, end: 20160711
  25. CODEIN [Concomitant]
     Active Substance: CODEINE
     Indication: COUGH
     Dates: start: 20160707, end: 20160717
  26. ONDANSETRON [Concomitant]
     Active Substance: ONDANSETRON
     Dates: start: 20160718, end: 20160718
  27. CODEIN [Concomitant]
     Active Substance: CODEINE
     Dates: start: 20160727, end: 20160810
  28. HELICID [Concomitant]
     Active Substance: OMEPRAZOLE
     Indication: PRODUCT USED FOR UNKNOWN INDICATION
     Dates: start: 20160627, end: 20160701
  29. HELICID [Concomitant]
     Active Substance: OMEPRAZOLE
     Dates: start: 20160718, end: 20160721
  30. ONDANSETRON [Concomitant]
     Active Substance: ONDANSETRON
     Indication: PRODUCT USED FOR UNKNOWN INDICATION
     Dates: start: 20160627, end: 20160627
  31. ACC LONG [Concomitant]
     Active Substance: ACETYLCYSTEINE
     Dates: start: 20160608, end: 20160829

REACTIONS (1)
  - Bronchitis [Recovered/Resolved with Sequelae]

NARRATIVE: CASE EVENT DATE: 20160725
